FAERS Safety Report 22755262 (Version 4)
Quarter: 2025Q1

REPORT INFORMATION
  Report Type: Report from Study
  Country: CH (occurrence: CH)
  Receive Date: 20230727
  Receipt Date: 20250206
  Transmission Date: 20250408
  Serious: No
  Sender: ROCHE
  Company Number: CH-ROCHE-3393399

PATIENT
  Age: 32 Year
  Sex: Male

DRUGS (2)
  1. OCREVUS [Suspect]
     Active Substance: OCRELIZUMAB
     Indication: Multiple sclerosis
     Route: 040
     Dates: start: 20230119
  2. OCREVUS [Suspect]
     Active Substance: OCRELIZUMAB
     Route: 040

REACTIONS (2)
  - SARS-CoV-2 test positive [Recovered/Resolved]
  - Off label use [Unknown]

NARRATIVE: CASE EVENT DATE: 20230719
